FAERS Safety Report 4561529-9 (Version None)
Quarter: 2005Q1

REPORT INFORMATION
  Report Type: 
  Country: None (occurrence: None)
  Receive Date: 20050121
  Receipt Date: 20050103
  Transmission Date: 20050727
  Serious: Yes (Hospitalization)
  Sender: FDA-Public Use
  Company Number: US_0501109886

PATIENT
  Age: 9 Year
  Sex: Male

DRUGS (3)
  1. GEMCITABINE HYDROCHLORIDE-IV (GEMCITABINE) [Suspect]
     Indication: MENINGITIS
     Dates: start: 20041028
  2. ZOFRAN [Concomitant]
  3. TYLENOL [Concomitant]

REACTIONS (6)
  - ARACHNOIDITIS [None]
  - DRUG INEFFECTIVE [None]
  - HEADACHE [None]
  - PYREXIA [None]
  - SKIN WARM [None]
  - VOMITING PROJECTILE [None]
